FAERS Safety Report 5220555-7 (Version None)
Quarter: 2007Q1

REPORT INFORMATION
  Report Type: 
  Country: None (occurrence: None)
  Receive Date: 20070126
  Receipt Date: 20070117
  Transmission Date: 20070707
  Serious: Yes (Hospitalization, Other)
  Sender: FDA-Public Use
  Company Number: GB-JNJFOC-20070103943

PATIENT
  Sex: Female
  Weight: 63 kg

DRUGS (9)
  1. REMICADE [Suspect]
     Indication: RHEUMATOID ARTHRITIS
     Route: 042
  2. AMLODIPINE [Concomitant]
  3. ATORVASTATIN CALCIUM [Concomitant]
  4. CO-CODAMOL [Concomitant]
  5. DICLOFENAC SODIUM [Concomitant]
  6. ENALAPRIL MALEATE [Concomitant]
  7. FOLIC ACID [Concomitant]
  8. METHOTREXATE [Concomitant]
  9. OMEPRAZOLE [Concomitant]

REACTIONS (3)
  - LETHARGY [None]
  - URINARY TRACT INFECTION [None]
  - VOMITING [None]
